FAERS Safety Report 13177865 (Version 2)
Quarter: 2017Q1

REPORT INFORMATION
  Report Type: Spontaneous
  Country: DE (occurrence: DE)
  Receive Date: 20170201
  Receipt Date: 20170313
  Transmission Date: 20170428
  Serious: Yes (Hospitalization, Other)
  Sender: FDA-Public Use
  Company Number: DE-AMGEN-DEUSP2017014425

PATIENT
  Age: 62 Year
  Sex: Female
  Weight: 81 kg

DRUGS (4)
  1. NEULASTA [Suspect]
     Active Substance: PEGFILGRASTIM
     Indication: LEUKOPENIA
     Dosage: UNK
     Route: 058
     Dates: start: 20170113, end: 20170113
  2. CARBOPLATIN. [Concomitant]
     Active Substance: CARBOPLATIN
     Indication: VULVAL CANCER
     Dosage: UNK, QWK (2 AUC)
  3. NEULASTA [Suspect]
     Active Substance: PEGFILGRASTIM
     Dosage: UNK
     Route: 058
     Dates: start: 20170126, end: 20170207
  4. PACLITAXEL. [Suspect]
     Active Substance: PACLITAXEL
     Indication: VULVAL CANCER
     Dosage: 80 MG/M2, QWK
     Route: 065
     Dates: start: 20161222, end: 20170209

REACTIONS (2)
  - Leukopenia [Recovered/Resolved]
  - Inappropriate schedule of drug administration [Unknown]

NARRATIVE: CASE EVENT DATE: 20170126
